FAERS Safety Report 7829725-2 (Version None)
Quarter: 2011Q4

REPORT INFORMATION
  Report Type: 
  Country: None (occurrence: None)
  Receive Date: 20111021
  Receipt Date: 20111010
  Transmission Date: 20120403
  Serious: Yes (Death)
  Sender: FDA-Public Use
  Company Number: US-RANBAXY-2011US-48969

PATIENT
  Age: 5 Year
  Sex: Female
  Weight: 18 kg

DRUGS (1)
  1. ACETAMINOPHEN [Suspect]
     Indication: INFLUENZA
     Dosage: UNK, 1/2 TO1TABLET EVERY FOR 4 HOURS
     Route: 048

REACTIONS (7)
  - PUPILLARY DISORDER [None]
  - METABOLIC ACIDOSIS [None]
  - HYPOTENSION [None]
  - MEDICATION ERROR [None]
  - HEPATIC FAILURE [None]
  - RENAL FAILURE [None]
  - HAEMORRHAGE [None]
